FAERS Safety Report 5949389-2 (Version None)
Quarter: 2008Q4

REPORT INFORMATION
  Report Type: 
  Country: None (occurrence: None)
  Receive Date: 20081112
  Receipt Date: 20081030
  Transmission Date: 20090506
  Serious: Yes (Hospitalization)
  Sender: FDA-Public Use
  Company Number: PHHY2008GT26494

PATIENT
  Age: 75 Year
  Sex: Male

DRUGS (3)
  1. FORADIL INHAL. CAPS. [Suspect]
     Indication: EMPHYSEMA
     Dosage: 12 UG, Q12H
     Dates: start: 20080601
  2. OXYGEN [Concomitant]
     Dosage: 3 LITRES PER MINUTE
     Dates: start: 20080601
  3. ALBUTEROL SULFATE [Concomitant]

REACTIONS (6)
  - BUNDLE BRANCH BLOCK LEFT [None]
  - ELECTROCARDIOGRAM ABNORMAL [None]
  - PLEURAL EFFUSION [None]
  - PNEUMONIA [None]
  - PROTEIN TOTAL DECREASED [None]
  - QRS AXIS ABNORMAL [None]
